FAERS Safety Report 12481710 (Version 2)
Quarter: 2016Q2

REPORT INFORMATION
  Report Type: Report from Study
  Country: CA (occurrence: CA)
  Receive Date: 20160620
  Receipt Date: 20160623
  Transmission Date: 20160815
  Serious: Yes (Other)
  Sender: FDA-Public Use
  Company Number: PHHY2016CA021292

PATIENT
  Age: 72 Year
  Sex: Female

DRUGS (6)
  1. CHLOR-TRIPOLON [Concomitant]
     Active Substance: LORATADINE
     Indication: SEASONAL ALLERGY
     Route: 065
  2. METOPROLOL. [Concomitant]
     Active Substance: METOPROLOL
     Indication: PRODUCT USED FOR UNKNOWN INDICATION
     Dosage: 25 MG, BID
     Route: 065
  3. INSULIN [Concomitant]
     Active Substance: INSULIN NOS
     Indication: PRODUCT USED FOR UNKNOWN INDICATION
     Route: 065
  4. CHLOR-TRIPOLON [Concomitant]
     Active Substance: LORATADINE
     Indication: HOUSE DUST ALLERGY
  5. CRESTOR [Concomitant]
     Active Substance: ROSUVASTATIN CALCIUM
     Indication: DIABETES MELLITUS
     Dosage: 40 MG, QD (DAILY)
     Route: 065
  6. SANDOSTATIN LAR DEPOT [Suspect]
     Active Substance: OCTREOTIDE ACETATE
     Indication: CARCINOID TUMOUR
     Dosage: 20 MG, QMO (EVERY 4 WEEKS)
     Route: 030
     Dates: start: 20160210

REACTIONS (15)
  - Blood glucose decreased [Unknown]
  - Pain [Recovered/Resolved]
  - Hyperchlorhydria [Unknown]
  - Dizziness [Unknown]
  - Pyrexia [Unknown]
  - Tremor [Unknown]
  - Rhinorrhoea [Unknown]
  - Injection site pain [Unknown]
  - Cold sweat [Unknown]
  - Diarrhoea [Unknown]
  - Decreased appetite [Unknown]
  - Asthenia [Unknown]
  - Loss of consciousness [Unknown]
  - Frequent bowel movements [Unknown]
  - Headache [Unknown]

NARRATIVE: CASE EVENT DATE: 20160210
